FAERS Safety Report 21184315 (Version 1)
Quarter: 2022Q3

REPORT INFORMATION
  Report Type: Spontaneous
  Country: US (occurrence: None)
  Receive Date: 20220804
  Receipt Date: 20220804
  Transmission Date: 20221027
  Serious: Yes (Other)
  Sender: FDA-Public Use
  Company Number: None

PATIENT
  Sex: Female

DRUGS (7)
  1. HUMALOG [Suspect]
     Active Substance: INSULIN LISPRO
     Indication: Diabetes mellitus
     Dosage: FREQUENCY : 3 TIMES A DAY;?
  2. NOVOLOG [Suspect]
     Active Substance: INSULIN ASPART
     Indication: Diabetes mellitus
     Dosage: FREQUENCY : TWICE A DAY;?
  3. CANTHAXANTHIN [Suspect]
     Active Substance: CANTHAXANTHIN
  4. LIDOCAINE [Suspect]
     Active Substance: LIDOCAINE
  5. LANTUS [Concomitant]
     Active Substance: INSULIN GLARGINE
  6. HYDROCHLOROTHIAZIDE [Concomitant]
     Active Substance: HYDROCHLOROTHIAZIDE
  7. LISINOPRIL [Concomitant]
     Active Substance: LISINOPRIL

REACTIONS (9)
  - Liver injury [None]
  - Skin discolouration [None]
  - Pruritus [None]
  - Pain [None]
  - Skin exfoliation [None]
  - Dry skin [None]
  - Skin cancer [None]
  - Retinopathy [None]
  - Gastrointestinal disorder [None]

NARRATIVE: CASE EVENT DATE: 20180101
